FAERS Safety Report 10078679 (Version 2)
Quarter: 2014Q2

REPORT INFORMATION
  Report Type: Spontaneous
  Country: DE (occurrence: None)
  Receive Date: 20140411
  Receipt Date: 20140421
  Transmission Date: 20141212
  Serious: Yes (Other)
  Sender: FDA-Public Use
  Company Number: 2014097522

PATIENT
  Age: 31 Year
  Sex: Female

DRUGS (1)
  1. FRAGMIN P FORTE [Suspect]
     Indication: FACTOR V LEIDEN MUTATION
     Dates: start: 2007, end: 2008

REACTIONS (5)
  - Back pain [None]
  - Osteoporotic fracture [None]
  - Maternal exposure during pregnancy [None]
  - Intestinal obstruction [None]
  - Osteoporosis [None]
